FAERS Safety Report 9490461 (Version 1)
Quarter: 2013Q3

REPORT INFORMATION
  Report Type: Spontaneous
  Country: US (occurrence: None)
  Receive Date: 20130827
  Receipt Date: 20130827
  Transmission Date: 20140515
  Serious: Yes (Other)
  Sender: FDA-Public Use
  Company Number: None

PATIENT
  Age: 81 Year
  Sex: Female

DRUGS (3)
  1. NITROFURANTOIN [Suspect]
     Indication: CYSTITIS
     Route: 048
     Dates: start: 20130601, end: 20130605
  2. CENTRUM SILVER [Concomitant]
  3. CALTRATE [Concomitant]

REACTIONS (6)
  - Foaming at mouth [None]
  - Diarrhoea [None]
  - Pain of skin [None]
  - Dizziness [None]
  - Insomnia [None]
  - Faeces discoloured [None]
